FAERS Safety Report 7577925-1 (Version None)
Quarter: 2011Q2

REPORT INFORMATION
  Report Type: 
  Country: None (occurrence: None)
  Receive Date: 20110628
  Receipt Date: 20110613
  Transmission Date: 20111010
  Serious: No
  Sender: FDA-Public Use
  Company Number: US-B.I. PHARMACEUTICALS,INC./RIDGEFIELD-2011-BP-15288BP

PATIENT
  Sex: Female

DRUGS (4)
  1. ZOCOR [Concomitant]
     Indication: BLOOD CHOLESTEROL INCREASED
  2. CARDIZEM [Concomitant]
     Indication: CARDIAC DISORDER
  3. PRADAXA [Suspect]
     Indication: ATRIAL FIBRILLATION
     Dosage: 300 MG
     Route: 048
     Dates: start: 20110401
  4. MULTAQ [Concomitant]
     Indication: CARDIAC DISORDER

REACTIONS (3)
  - ORAL DISCOMFORT [None]
  - GLOSSODYNIA [None]
  - HEADACHE [None]
